FAERS Safety Report 11198241 (Version 2)
Quarter: 2019Q1

REPORT INFORMATION
  Report Type: Spontaneous
  Country: DK (occurrence: DK)
  Receive Date: 20150618
  Receipt Date: 20190329
  Transmission Date: 20190417
  Serious: Yes (Hospitalization)
  Sender: FDA-Public Use
  Company Number: DK-ROCHE-1595575

PATIENT
  Age: 51 Year
  Sex: Female
  Weight: 90 kg

DRUGS (13)
  1. LYRICA [Concomitant]
     Active Substance: PREGABALIN
     Indication: ANXIETY
     Route: 065
     Dates: start: 20150113, end: 20150527
  2. BETNOVAT (DENMARK) [Concomitant]
     Indication: PSORIASIS
     Route: 065
     Dates: start: 20130206
  3. METADON [Concomitant]
     Active Substance: METHADONE HYDROCHLORIDE
     Indication: PAIN
     Route: 065
     Dates: start: 20130206
  4. SYMBICORT [Concomitant]
     Active Substance: BUDESONIDE\FORMOTEROL FUMARATE DIHYDRATE
     Indication: ASTHMA
     Route: 065
     Dates: start: 20150113
  5. DAKLINZA [Suspect]
     Active Substance: DACLATASVIR
     Indication: CHRONIC HEPATITIS C
     Route: 048
     Dates: start: 20150401, end: 20150530
  6. CENTYL MED KALIUMKLORID [Concomitant]
     Active Substance: BENDROFLUMETHIAZIDE\POTASSIUM CHLORIDE
     Indication: DIURETIC THERAPY
     Route: 065
     Dates: start: 20140424, end: 20150522
  7. PERILAX (DENMARK) [Concomitant]
     Indication: CONSTIPATION
     Route: 065
     Dates: start: 20131205
  8. HEXALID [Concomitant]
     Indication: SEDATIVE THERAPY
     Route: 065
     Dates: start: 20131205, end: 20150527
  9. SOVALDI [Suspect]
     Active Substance: SOFOSBUVIR
     Indication: CHRONIC HEPATITIS C
     Route: 048
     Dates: start: 20150401, end: 20150530
  10. DAIVOBET [Concomitant]
     Active Substance: BETAMETHASONE DIPROPIONATE\CALCIPOTRIENE
     Indication: PSORIASIS
     Route: 065
     Dates: start: 20140424
  11. COPEGUS [Suspect]
     Active Substance: RIBAVIRIN
     Indication: CHRONIC HEPATITIS C
     Route: 048
     Dates: start: 20150401, end: 20150527
  12. VAGIFEM [Concomitant]
     Active Substance: ESTRADIOL
     Indication: HORMONE THERAPY
     Route: 065
     Dates: start: 20150327
  13. MONTELUKAST SODIUM. [Concomitant]
     Active Substance: MONTELUKAST SODIUM
     Indication: ASTHMA
     Route: 065
     Dates: start: 20150522

REACTIONS (10)
  - Hallucination, auditory [Recovering/Resolving]
  - Delusion [Recovered/Resolved]
  - Confusional state [Recovering/Resolving]
  - Hallucination, visual [Recovering/Resolving]
  - Abnormal dreams [Unknown]
  - Paranoia [Recovered/Resolved]
  - Nightmare [Unknown]
  - Psychotic disorder [Recovered/Resolved]
  - Memory impairment [Recovered/Resolved]
  - Disturbance in attention [Recovered/Resolved]

NARRATIVE: CASE EVENT DATE: 201505
